FAERS Safety Report 18651962 (Version 1)
Quarter: 2020Q4

REPORT INFORMATION
  Report Type: Spontaneous
  Country: CA (occurrence: CA)
  Receive Date: 20201223
  Receipt Date: 20201223
  Transmission Date: 20210114
  Serious: Yes (Other)
  Sender: FDA-Public Use
  Company Number: CA-SA-2018SA130576

PATIENT

DRUGS (5)
  1. PLAQUENIL [Suspect]
     Active Substance: HYDROXYCHLOROQUINE SULFATE
     Dosage: UNK UNK,UNK
     Route: 048
     Dates: start: 201608, end: 201609
  2. LEFLUNOMIDE. [Suspect]
     Active Substance: LEFLUNOMIDE
     Dosage: UNK UNK,UNK
     Route: 048
     Dates: start: 201604
  3. SIMPONI [Concomitant]
     Active Substance: GOLIMUMAB
     Dosage: UNK UNK,UNK
     Route: 065
     Dates: start: 201710, end: 201804
  4. METHOTREXATE. [Concomitant]
     Active Substance: METHOTREXATE
     Dosage: UNK UNK,UNK
     Route: 065
     Dates: start: 201605, end: 201608
  5. HUMIRA [Concomitant]
     Active Substance: ADALIMUMAB
     Dosage: UNK UNK,UNK
     Route: 065
     Dates: start: 201611, end: 201709

REACTIONS (2)
  - Rheumatoid arthritis [Unknown]
  - Joint swelling [Unknown]
